FAERS Safety Report 21531913 (Version 1)
Quarter: 2022Q4

REPORT INFORMATION
  Report Type: Spontaneous
  Country: CN (occurrence: CN)
  Receive Date: 20221101
  Receipt Date: 20221101
  Transmission Date: 20230113
  Serious: Yes (Other)
  Sender: FDA-Public Use
  Company Number: None

PATIENT
  Age: 57 Year
  Sex: Female
  Weight: 69 kg

DRUGS (2)
  1. CYCLOPHOSPHAMIDE [Suspect]
     Active Substance: CYCLOPHOSPHAMIDE
     Indication: Breast cancer female
     Dosage: (IMPORTED),AT 14:00, 800 MG, QD, POSTOPERATIVE ADJUVANT CHEMOTHERAPY
     Route: 041
     Dates: start: 20220908, end: 20220908
  2. CYCLOPHOSPHAMIDE [Suspect]
     Active Substance: CYCLOPHOSPHAMIDE
     Indication: Neoplasm
     Dosage: POSTOPERATIVE ADJUVANT CHEMOTHERAPY,  (IMPORTED), SYSTEMIC
     Route: 042
     Dates: start: 20220929, end: 20220929

REACTIONS (3)
  - Hypophagia [Unknown]
  - Nausea [Recovering/Resolving]
  - Vomiting [Recovering/Resolving]

NARRATIVE: CASE EVENT DATE: 20220908
